FAERS Safety Report 7150250 (Version 20)
Quarter: 2014Q1

REPORT INFORMATION
  Report Type: Spontaneous
  Country: US (occurrence: US)
  Receive Date: 20091015
  Receipt Date: 20140226
  Transmission Date: 20141002
  Serious: Yes (Hospitalization, Disabling, Other)
  Sender: FDA-Public Use
  Company Number: US-009507513-0910USA01555

PATIENT
  Sex: Female
  Weight: 55.34 kg

DRUGS (21)
  1. FOSAMAX [Suspect]
     Indication: OSTEOPOROSIS
     Dosage: A.M
     Route: 048
     Dates: start: 20010905, end: 20090729
  2. FOSAMAX [Suspect]
     Indication: OSTEOPENIA
  3. CALCIUM (UNSPECIFIED) (+) VITAMIN D (UNSPECIFIED) [Concomitant]
     Dosage: 600-200
     Route: 048
     Dates: start: 1983
  4. ELAVIL [Concomitant]
     Dosage: 25 MG, UNK
     Route: 048
  5. LOTENSIN HCT [Concomitant]
     Dosage: 10-12.5
     Route: 048
     Dates: start: 2003
  6. MK-9278 [Concomitant]
     Route: 048
     Dates: start: 2000
  7. ASPIRIN [Concomitant]
     Dosage: 81 MG, UNK
     Dates: start: 2007
  8. ZOCOR [Concomitant]
     Dosage: 20 MG, UNK
     Route: 048
     Dates: start: 2003
  9. OMEGA-3 MARINE TRIGLYCERIDES [Concomitant]
     Dates: start: 2000
  10. NIACIN [Concomitant]
     Dosage: 500 MG, UNK
     Route: 048
     Dates: start: 2005
  11. CYANOCOBALAMIN [Concomitant]
  12. DILAUDID [Concomitant]
  13. VAGIFEM [Concomitant]
     Dosage: 25 ?G, BIW
     Route: 067
  14. PREMARIN [Concomitant]
     Dosage: 0.65
     Route: 067
  15. LEVOTIROXINA S.O [Concomitant]
     Dosage: 75 ?G, UNK
  16. FOSAMAX [Suspect]
     Indication: OSTEOPOROSIS
     Dosage: A.M
     Route: 048
     Dates: end: 20061108
  17. FOSAMAX [Suspect]
     Indication: OSTEOPENIA
  18. ELAVIL (MADE BY MERCK, MARKETED BY ZENECA) [Concomitant]
     Indication: SLEEP DISORDER
     Dates: start: 1985
  19. SIMVASTATIN [Concomitant]
     Dates: start: 2003
  20. FOSAMAX [Suspect]
     Dosage: 70 MG, QW
     Route: 048
     Dates: start: 20081017, end: 200812
  21. BONIVA [Suspect]

REACTIONS (56)
  - Intramedullary rod insertion [Unknown]
  - Fall [Recovering/Resolving]
  - Arthropathy [Unknown]
  - Arthrodesis [Unknown]
  - Spinal column stenosis [Unknown]
  - Chest pain [Unknown]
  - Tension headache [Recovered/Resolved]
  - Myofascial pain syndrome [Unknown]
  - Arachnoid cyst [Unknown]
  - Arachnoid cyst [Unknown]
  - Haemorrhagic anaemia [Unknown]
  - Bunion [Unknown]
  - Foot deformity [Unknown]
  - Foot deformity [Unknown]
  - Postoperative wound infection [Unknown]
  - Knee arthroplasty [Unknown]
  - Pyrexia [Not Recovered/Not Resolved]
  - Vomiting [Recovered/Resolved]
  - Nausea [Recovered/Resolved]
  - Nausea [Recovered/Resolved]
  - Nausea [Recovered/Resolved]
  - Constipation [Unknown]
  - Femur fracture [Recovering/Resolving]
  - Anxiety [Unknown]
  - Rhinitis allergic [Unknown]
  - Intervertebral disc protrusion [Unknown]
  - Fracture delayed union [Unknown]
  - Meniscus injury [Unknown]
  - Patellofemoral pain syndrome [Unknown]
  - Joint effusion [Unknown]
  - Iliotibial band syndrome [Unknown]
  - Arthritis [Unknown]
  - Vulval disorder [Unknown]
  - Cystitis interstitial [Unknown]
  - Gastroenteritis [Not Recovered/Not Resolved]
  - Osteoarthritis [Unknown]
  - Fatigue [Unknown]
  - Bacterial vaginosis [Unknown]
  - Anaemia [Unknown]
  - Arthritis [Unknown]
  - Atrophy [Unknown]
  - Urethral caruncle [Unknown]
  - Foot fracture [Unknown]
  - Osteopenia [Unknown]
  - Spinal compression fracture [Unknown]
  - Osteoarthritis [Unknown]
  - Scoliosis [Unknown]
  - Influenza [Unknown]
  - Influenza like illness [Unknown]
  - Blood glucose increased [Unknown]
  - Pain in extremity [Recovering/Resolving]
  - Arthralgia [Recovered/Resolved]
  - Nausea [Recovered/Resolved]
  - Abdominal discomfort [Recovered/Resolved]
  - Diarrhoea [Unknown]
  - Arthralgia [Unknown]
